FAERS Safety Report 12802434 (Version 1)
Quarter: 2016Q4

REPORT INFORMATION
  Report Type: Report from Study
  Country: CA (occurrence: CA)
  Receive Date: 20161003
  Receipt Date: 20161003
  Transmission Date: 20170207
  Serious: Yes (Other)
  Sender: FDA-Public Use
  Company Number: CA-BIOGEN-2016BI00298320

PATIENT
  Age: 39 Year
  Sex: Female

DRUGS (3)
  1. NOVAMOXIN [Concomitant]
     Active Substance: AMOXICILLIN
     Indication: DENTAL CLEANING
     Dosage: FOR 7 DAYS
     Route: 065
     Dates: start: 20160923
  2. TYSABRI [Suspect]
     Active Substance: NATALIZUMAB
     Indication: MULTIPLE SCLEROSIS
     Dosage: INFUSED OVER 1 HOUR
     Route: 042
     Dates: start: 20110217
  3. METRONIDAZOLE. [Concomitant]
     Active Substance: METRONIDAZOLE
     Indication: DENTAL CLEANING
     Dosage: FOR 7 DAYS
     Route: 065

REACTIONS (2)
  - Dental disorder prophylaxis [Not Recovered/Not Resolved]
  - Valvuloplasty cardiac [Unknown]

NARRATIVE: CASE EVENT DATE: 20160923
